FAERS Safety Report 8407810-4 (Version None)
Quarter: 2012Q2

REPORT INFORMATION
  Report Type: 
  Country: None (occurrence: None)
  Receive Date: 20120604
  Receipt Date: 20120525
  Transmission Date: 20120825
  Serious: Yes (Hospitalization, Other)
  Sender: FDA-Public Use
  Company Number: US-ASTRAZENECA-2009UW21481

PATIENT
  Age: 78 Year
  Sex: Female

DRUGS (2)
  1. RHINOCORT [Suspect]
     Route: 045
  2. FLONASE [Concomitant]

REACTIONS (4)
  - ADVERSE EVENT [None]
  - ERYTHROMELALGIA [None]
  - NEOPLASM MALIGNANT [None]
  - THERMAL BURN [None]
